FAERS Safety Report 16882131 (Version 1)
Quarter: 2019Q4

REPORT INFORMATION
  Report Type: Spontaneous
  Country: US (occurrence: US)
  Receive Date: 20191003
  Receipt Date: 20191003
  Transmission Date: 20200122
  Serious: Yes (Hospitalization)
  Sender: FDA-Public Use
  Company Number: None

PATIENT
  Sex: Female

DRUGS (6)
  1. METHOCARBAM [Concomitant]
     Active Substance: METHOCARBAMOL
  2. COSENTYX [Suspect]
     Active Substance: SECUKINUMAB
     Indication: PSORIASIS
     Dosage: 300MG EVERY WEEK FOR 5 WEEKS, THEN EVERY 4 WEEKS THEREAFTER. SUBQ.
     Route: 058
     Dates: start: 20180612
  3. FOLIC ACID. [Concomitant]
     Active Substance: FOLIC ACID
  4. MELOXICAM. [Concomitant]
     Active Substance: MELOXICAM
  5. VITAMIN D [Concomitant]
     Active Substance: VITAMIN D NOS
  6. PRILOSEC [Concomitant]
     Active Substance: OMEPRAZOLE MAGNESIUM

REACTIONS (2)
  - Lung neoplasm surgery [None]
  - Neuropathy peripheral [None]
